FAERS Safety Report 13844144 (Version 8)
Quarter: 2021Q3

REPORT INFORMATION
  Report Type: Spontaneous
  Country: US (occurrence: US)
  Receive Date: 20170808
  Receipt Date: 20210927
  Transmission Date: 20211014
  Serious: No
  Sender: FDA-Public Use
  Company Number: US-PFIZER INC-2017152282

PATIENT
  Age: 62 Year
  Sex: Female
  Weight: 84 kg

DRUGS (8)
  1. XELJANZ XR [Suspect]
     Active Substance: TOFACITINIB CITRATE
     Indication: RHEUMATOID ARTHRITIS
     Dosage: 11 MG, DAILY (1 TABLET EVERY DAY)
     Route: 048
     Dates: start: 201608, end: 201705
  2. FOLIC ACID. [Concomitant]
     Active Substance: FOLIC ACID
     Indication: IMMUNE SYSTEM DISORDER
     Dosage: 1 MG, 1X/DAY
     Dates: start: 1998, end: 201704
  3. CELEBREX [Concomitant]
     Active Substance: CELECOXIB
     Indication: MUSCULOSKELETAL STIFFNESS
     Dosage: 200 MG, AS NEEDED
     Dates: start: 1998
  4. POTASSIUM [Concomitant]
     Active Substance: POTASSIUM
     Indication: HYPOKALAEMIA
     Dosage: 99 MG, 1X/DAY
  5. METHOTREXATE. [Concomitant]
     Active Substance: METHOTREXATE
     Dosage: 84 MG, WEEKLY [8 TABLETS ONCE A WEEK]
  6. METHOTREXATE. [Concomitant]
     Active Substance: METHOTREXATE
     Indication: RHEUMATOID ARTHRITIS
     Dosage: 63 MG, WEEKLY [10.5MG 6 TABLETS ONCE A WEEK]
     Dates: start: 1998, end: 201704
  7. CALCIUM [Concomitant]
     Active Substance: CALCIUM
     Indication: RHEUMATOID ARTHRITIS
     Dosage: 1200 MG, 1X/DAY
     Dates: start: 1998
  8. LYSINE [Concomitant]
     Active Substance: LYSINE
     Indication: IMMUNE SYSTEM DISORDER
     Dosage: 1000 MG, DAILY

REACTIONS (23)
  - Drug ineffective [Unknown]
  - Depression [Unknown]
  - Joint contracture [Not Recovered/Not Resolved]
  - Chills [Unknown]
  - Fatigue [Unknown]
  - Muscle spasms [Unknown]
  - Menstrual disorder [Unknown]
  - Back pain [Unknown]
  - Arthralgia [Unknown]
  - Rash [Unknown]
  - Oedema peripheral [Unknown]
  - Bronchitis [Recovered/Resolved]
  - Muscular weakness [Unknown]
  - Pyrexia [Unknown]
  - Appetite disorder [Unknown]
  - Headache [Unknown]
  - Erythema [Unknown]
  - Genital burning sensation [Unknown]
  - Arthropathy [Unknown]
  - Nail discolouration [Unknown]
  - Condition aggravated [Unknown]
  - Increased tendency to bruise [Unknown]
  - Myalgia [Unknown]
